FAERS Safety Report 16335885 (Version 1)
Quarter: 2019Q2

REPORT INFORMATION
  Report Type: Spontaneous
  Country: US (occurrence: US)
  Receive Date: 20190521
  Receipt Date: 20190521
  Transmission Date: 20190711
  Serious: No
  Sender: FDA-Public Use
  Company Number: US-009507513-1905USA002280

PATIENT
  Age: 34 Year
  Sex: Female
  Weight: 139.05 kg

DRUGS (1)
  1. NEXPLANON [Suspect]
     Active Substance: ETONOGESTREL
     Dosage: 68MG (IMPLANT)
     Route: 059
     Dates: start: 20150502

REACTIONS (6)
  - Incorrect product administration duration [Not Recovered/Not Resolved]
  - Weight increased [Not Recovered/Not Resolved]
  - Complication of device removal [Not Recovered/Not Resolved]
  - Acne [Not Recovered/Not Resolved]
  - Device deployment issue [Not Recovered/Not Resolved]
  - Complication associated with device [Recovered/Resolved]

NARRATIVE: CASE EVENT DATE: 20180503
